FAERS Safety Report 23293234 (Version 1)
Quarter: 2023Q4

REPORT INFORMATION
  Report Type: Spontaneous
  Country: US (occurrence: US)
  Receive Date: 20231213
  Receipt Date: 20231213
  Transmission Date: 20240110
  Serious: No
  Sender: FDA-Public Use
  Company Number: US-NOVOPROD-1016249

PATIENT
  Age: 80 Year
  Sex: Male

DRUGS (1)
  1. LEVEMIR [Suspect]
     Active Substance: INSULIN DETEMIR
     Indication: Diabetes mellitus
     Dosage: UNK
     Route: 058
     Dates: start: 20220120, end: 20230123

REACTIONS (5)
  - Arthralgia [Not Recovered/Not Resolved]
  - Visual impairment [Unknown]
  - Rhinorrhoea [Not Recovered/Not Resolved]
  - Productive cough [Recovered/Resolved]
  - Joint swelling [Not Recovered/Not Resolved]

NARRATIVE: CASE EVENT DATE: 20230122
